FAERS Safety Report 7046612-0 (Version None)
Quarter: 2010Q4

REPORT INFORMATION
  Report Type: 
  Country: None (occurrence: None)
  Receive Date: 20101015
  Receipt Date: 20101005
  Transmission Date: 20110411
  Serious: No
  Sender: FDA-Public Use
  Company Number: US-BIOGENIDEC-2010BI034943

PATIENT
  Age: 50 Year
  Sex: Female

DRUGS (1)
  1. TYSABRI [Suspect]
     Indication: MULTIPLE SCLEROSIS
     Route: 042
     Dates: start: 20090224, end: 20091101

REACTIONS (4)
  - COORDINATION ABNORMAL [None]
  - GENERAL SYMPTOM [None]
  - H1N1 INFLUENZA [None]
  - MALAISE [None]
